FAERS Safety Report 10716728 (Version 2)
Quarter: 2015Q1

REPORT INFORMATION
  Report Type: Spontaneous
  Country: FR (occurrence: FR)
  Receive Date: 20150116
  Receipt Date: 20150120
  Transmission Date: 20150721
  Serious: Yes (Other)
  Sender: FDA-Public Use
  Company Number: FR-ACTAVIS-2014-28240

PATIENT
  Age: 35 Year
  Sex: Female

DRUGS (2)
  1. TRAMADOL-PARACETAMOL ACTAVIS [Suspect]
     Active Substance: ACETAMINOPHEN\TRAMADOL
     Indication: TOOTHACHE
     Dosage: 2 DF, TID
     Route: 048
     Dates: start: 20141124, end: 20141125
  2. BIRODOGYL [Suspect]
     Active Substance: METRONIDAZOLE\SPIRAMYCIN
     Indication: TOOTH DISORDER
     Dosage: SEVERAL DAYS
     Route: 048
     Dates: start: 20141125

REACTIONS (5)
  - Swollen tongue [Recovered/Resolved]
  - Dizziness [Recovered/Resolved]
  - Pruritus [Recovered/Resolved]
  - Urticaria [Recovered/Resolved]
  - Swelling face [Recovered/Resolved]

NARRATIVE: CASE EVENT DATE: 20141124
